FAERS Safety Report 16792311 (Version 4)
Quarter: 2019Q3

REPORT INFORMATION
  Report Type: Spontaneous
  Country: ES (occurrence: ES)
  Receive Date: 20190910
  Receipt Date: 20190919
  Transmission Date: 20191005
  Serious: Yes (Other)
  Sender: FDA-Public Use
  Company Number: ES-009507513-1909ESP003112

PATIENT
  Age: 62 Year
  Sex: Male

DRUGS (2)
  1. IBRUTINIB [Suspect]
     Active Substance: IBRUTINIB
     Indication: MANTLE CELL LYMPHOMA STAGE IV
     Dosage: UNK
  2. POSACONAZOLE [Suspect]
     Active Substance: POSACONAZOLE
     Indication: PROPHYLAXIS
     Dosage: UNK
     Route: 048

REACTIONS (12)
  - Hepatotoxicity [Unknown]
  - Escherichia bacteraemia [Unknown]
  - Pleural effusion [Unknown]
  - Cytomegalovirus infection [Unknown]
  - Transaminases increased [Unknown]
  - Pericardial effusion [Unknown]
  - Pulmonary mass [Unknown]
  - Central nervous system lesion [Unknown]
  - Intracranial mass [Unknown]
  - Chest X-ray abnormal [Unknown]
  - Enterococcal bacteraemia [Unknown]
  - Aspergillus infection [Unknown]

NARRATIVE: CASE EVENT DATE: 2016
